FAERS Safety Report 19808785 (Version 1)
Quarter: 2021Q3

REPORT INFORMATION
  Report Type: Spontaneous
  Country: US (occurrence: US)
  Receive Date: 20210908
  Receipt Date: 20210908
  Transmission Date: 20211014
  Serious: No
  Sender: FDA-Public Use
  Company Number: None

PATIENT
  Age: 44 Year
  Sex: Female
  Weight: 90 kg

DRUGS (16)
  1. BISACODYL. [Concomitant]
     Active Substance: BISACODYL
  2. PROCHLORPERAZINE. [Concomitant]
     Active Substance: PROCHLORPERAZINE
  3. MS CONTIN [Concomitant]
     Active Substance: MORPHINE SULFATE
  4. ATENOLOL. [Concomitant]
     Active Substance: ATENOLOL
  5. CAPECITABINE. [Suspect]
     Active Substance: CAPECITABINE
     Indication: BREAST CANCER
     Dosage: ?          OTHER FREQUENCY:BID 14/21 DAYS;?
     Route: 048
     Dates: start: 20210622
  6. LYRICA [Concomitant]
     Active Substance: PREGABALIN
  7. PROBIOTIC [Concomitant]
     Active Substance: PROBIOTICS NOS
  8. LOPERAMIDE [Concomitant]
     Active Substance: LOPERAMIDE
  9. MIRALAX [Concomitant]
     Active Substance: POLYETHYLENE GLYCOL 3350
  10. SENNA DOCUSATE [Concomitant]
  11. DOXYCYCLINE. [Concomitant]
     Active Substance: DOXYCYCLINE
  12. HYDROCHLOROTHIAZIDE. [Concomitant]
     Active Substance: HYDROCHLOROTHIAZIDE
  13. TYLENOL EXTRA STRENGTH [Concomitant]
     Active Substance: ACETAMINOPHEN
  14. LEVOTHYROXINE. [Concomitant]
     Active Substance: LEVOTHYROXINE
  15. NARCAN [Concomitant]
     Active Substance: NALOXONE HYDROCHLORIDE
  16. ONDANSETRON [Concomitant]
     Active Substance: ONDANSETRON

REACTIONS (4)
  - Fatigue [None]
  - Nausea [None]
  - Illness [None]
  - Diarrhoea [None]

NARRATIVE: CASE EVENT DATE: 20210907
